FAERS Safety Report 5045123-1 (Version None)
Quarter: 2006Q3

REPORT INFORMATION
  Report Type: 
  Country: None (occurrence: None)
  Receive Date: 20060705
  Receipt Date: 20060615
  Transmission Date: 20061208
  Serious: Yes (Other)
  Sender: FDA-Public Use
  Company Number: USA040567738

PATIENT
  Sex: Female

DRUGS (1)
  1. EVISTA [Suspect]
     Indication: OSTEOPENIA
     Dosage: SEE IMAGE
     Route: 048
     Dates: start: 20020101

REACTIONS (6)
  - BREAST CANCER METASTATIC [None]
  - BREAST CANCER RECURRENT [None]
  - CONTUSION [None]
  - SKIN EXFOLIATION [None]
  - SKIN FRAGILITY [None]
  - SWELLING [None]
